FAERS Safety Report 4616545-5 (Version None)
Quarter: 2005Q1

REPORT INFORMATION
  Report Type: 
  Country: None (occurrence: None)
  Receive Date: 20050318
  Receipt Date: 20050310
  Transmission Date: 20050727
  Serious: Yes (Death, Other)
  Sender: FDA-Public Use
  Company Number: 2005-03-0756

PATIENT
  Age: 51 Year
  Sex: Female

DRUGS (3)
  1. PEG-INTRON [Suspect]
     Dosage: SUBCUTANEOUS
     Route: 058
     Dates: start: 20040401
  2. RIBAVIRIN [Suspect]
     Dosage: ORAL
     Route: 048
     Dates: start: 20040401
  3. ANALGESIC (NOS) [Suspect]
     Dosage: OVERDOSE

REACTIONS (5)
  - ANAEMIA [None]
  - COMPLETED SUICIDE [None]
  - DEPRESSION [None]
  - OVERDOSE [None]
  - WEIGHT DECREASED [None]
